FAERS Safety Report 18680641 (Version 2)
Quarter: 2021Q1

REPORT INFORMATION
  Report Type: Spontaneous
  Country: PT (occurrence: PT)
  Receive Date: 20201230
  Receipt Date: 20210104
  Transmission Date: 20210419
  Serious: Yes (Death)
  Sender: FDA-Public Use
  Company Number: PT-CELLTRION INC.-2020PT034674

PATIENT

DRUGS (1)
  1. RITUXIMAB (UNKNOWN) [Suspect]
     Active Substance: RITUXIMAB
     Indication: NODULAR LYMPHOCYTE PREDOMINANT HODGKIN LYMPHOMA

REACTIONS (5)
  - Off label use [Unknown]
  - Death [Fatal]
  - Disease recurrence [Unknown]
  - Disease progression [Unknown]
  - Lymphoma transformation [Unknown]
